FAERS Safety Report 13959298 (Version 1)
Quarter: 2017Q3

REPORT INFORMATION
  Report Type: Spontaneous
  Country: ZA (occurrence: ZA)
  Receive Date: 20170911
  Receipt Date: 20170911
  Transmission Date: 20171128
  Serious: Yes (Other)
  Sender: FDA-Public Use
  Company Number: ZA-LUNDBECK-DKLU2036943

PATIENT
  Sex: Male

DRUGS (1)
  1. URBANOL [Suspect]
     Active Substance: CLOBAZAM
     Indication: PRODUCT USED FOR UNKNOWN INDICATION
     Dosage: TOTAL
     Route: 048

REACTIONS (3)
  - General physical health deterioration [Unknown]
  - Overdose [Unknown]
  - Dependence [Unknown]
